FAERS Safety Report 22230323 (Version 1)
Quarter: 2023Q2

REPORT INFORMATION
  Report Type: Spontaneous
  Country: CN (occurrence: CN)
  Receive Date: 20230419
  Receipt Date: 20230419
  Transmission Date: 20230722
  Serious: Yes (Hospitalization)
  Sender: FDA-Public Use
  Company Number: CN-PRINSTON PHARMACEUTICAL INC.-2023PRN00152

PATIENT
  Age: 66 Year
  Sex: Female

DRUGS (2)
  1. CAPTOPRIL [Suspect]
     Active Substance: CAPTOPRIL
     Indication: Hypertension
     Dosage: 25 MG, 1X/DAY
     Route: 048
     Dates: start: 2018, end: 20201113
  2. NIFEDIPINE EXTENDED RELEASE TABLETS (III) [Concomitant]
     Indication: Hypertension
     Dosage: 20 MG, 2X/DAY; EXTENDED RELEASE
     Route: 048
     Dates: start: 2018

REACTIONS (1)
  - Insulin autoimmune syndrome [Recovered/Resolved]
